FAERS Safety Report 16637574 (Version 1)
Quarter: 2019Q3

REPORT INFORMATION
  Report Type: Spontaneous
  Country: US (occurrence: US)
  Receive Date: 20190726
  Receipt Date: 20190726
  Transmission Date: 20191004
  Serious: Yes (Disabling)
  Sender: FDA-Public Use
  Company Number: None

PATIENT
  Age: 22 Year
  Sex: Female
  Weight: 48.6 kg

DRUGS (4)
  1. ALBUTEROL INHALER [Concomitant]
     Active Substance: ALBUTEROL
  2. FLUOXETINE 10MG CAPSULE, GENERIC FOR PROZAC, MFR: PLIVA INC # 647 [Suspect]
     Active Substance: FLUOXETINE HYDROCHLORIDE
     Indication: SUICIDAL IDEATION
     Dosage: ?          QUANTITY:30 CAPSULE(S);?
     Route: 048
     Dates: start: 20160825, end: 20160901
  3. ALLERCLEAR D [Concomitant]
  4. FLUOXETINE 10MG CAPSULE, GENERIC FOR PROZAC, MFR: PLIVA INC # 647 [Suspect]
     Active Substance: FLUOXETINE HYDROCHLORIDE
     Indication: DEPRESSION
     Dosage: ?          QUANTITY:30 CAPSULE(S);?
     Route: 048
     Dates: start: 20160825, end: 20160901

REACTIONS (10)
  - Flatulence [None]
  - Irritable bowel syndrome [None]
  - Anorgasmia [None]
  - Weight decreased [None]
  - Fatigue [None]
  - Hunger [None]
  - Insomnia [None]
  - Impaired quality of life [None]
  - Food intolerance [None]
  - Asthenia [None]

NARRATIVE: CASE EVENT DATE: 20160825
